FAERS Safety Report 8484234 (Version 2)
Quarter: 2012Q4

REPORT INFORMATION
  Report Type: 
  Country: CA (occurrence: CA)
  Receive Date: 20120330
  Receipt Date: 20121204
  Transmission Date: 20130627
  Serious: Yes (Other)
  Sender: FDA-Public Use
  Company Number: PHHY2012CA025685

PATIENT
  Sex: Female
  Weight: 82 kg

DRUGS (5)
  1. ACLASTA/ZOLEDRONATE [Suspect]
     Indication: OSTEOPOROSIS
     Dosage: UNK UKN, UNK
     Route: 042
     Dates: start: 20091218
  2. ACLASTA/ZOLEDRONATE [Suspect]
     Dosage: UNK UKN, UNK
     Route: 042
     Dates: start: 20110512
  3. ACLASTA/ZOLEDRONATE [Suspect]
     Dosage: UNK UKN, UNK
     Route: 042
  4. VITAMIN D [Concomitant]
     Dosage: 500 UKN, BID
  5. CALCIUM [Concomitant]
     Dosage: 1000 IU, per week

REACTIONS (4)
  - Dementia [Unknown]
  - Renal failure chronic [Unknown]
  - Creatinine renal clearance decreased [Unknown]
  - Dyspepsia [Unknown]
